FAERS Safety Report 7450034-8 (Version None)
Quarter: 2011Q2

REPORT INFORMATION
  Report Type: 
  Country: None (occurrence: None)
  Receive Date: 20110502
  Receipt Date: 20080205
  Transmission Date: 20111010
  Serious: Yes (Hospitalization, Other)
  Sender: FDA-Public Use
  Company Number: US-BAYER-200813212NA

PATIENT
  Age: 59 Year
  Sex: Male
  Weight: 95.238 kg

DRUGS (28)
  1. PLAVIX [Concomitant]
     Dosage: 75 MG, UNK
     Route: 048
     Dates: start: 20030801
  2. ETOMIDATE [Concomitant]
     Dosage: UNK
     Route: 042
     Dates: start: 20031111
  3. TRASYLOL [Suspect]
     Dosage: 100 ML/HR (INFUSION)
     Route: 042
     Dates: start: 20031111
  4. AMIODARONE [Concomitant]
     Dosage: 200 MG, QD
     Route: 048
  5. TRASYLOL [Suspect]
     Indication: CORONARY ARTERY BYPASS
     Dosage: 1 ML, ONCE (INITIAL)
     Route: 042
     Dates: start: 20031111
  6. LASIX [Concomitant]
     Dosage: 20 MG, QD
     Route: 048
  7. LIPITOR [Concomitant]
     Dosage: 40 MG, QD
     Route: 048
  8. ACETYLSALICYLIC ACID SRT [Concomitant]
     Dosage: 325 MG, UNK
     Route: 048
  9. PROTAMINE SULFATE [Concomitant]
     Dosage: UNK
     Route: 042
     Dates: start: 20031111
  10. TRASYLOL [Suspect]
     Dosage: 100 ML (PUMP PRIME)
     Route: 042
     Dates: start: 20031111
  11. FORANE [Concomitant]
     Dosage: UNK
     Route: 042
     Dates: start: 20031111
  12. VERSED [Concomitant]
     Dosage: UNK
     Route: 042
     Dates: start: 20031111
  13. PAVULON [Concomitant]
     Dosage: UNK
     Route: 042
     Dates: start: 20031111
  14. ALDACTONE [Concomitant]
     Dosage: 25 MG, QD
     Route: 048
  15. NITROGLYCERIN [Concomitant]
     Dosage: UNK
     Route: 042
     Dates: start: 20031111
  16. COREG [Concomitant]
     Dosage: 6.25 MG, BID
     Route: 048
  17. AMBIEN [Concomitant]
     Dosage: 10 MG, UNK
     Route: 048
  18. CORDARONE [Concomitant]
     Dosage: UNK
     Route: 042
     Dates: start: 20031111
  19. HEPARIN [Concomitant]
     Dosage: 42000 U, UNK
     Route: 042
     Dates: start: 20031111
  20. ALLOPURINOL [Concomitant]
     Dosage: 300 MG, UNK
     Route: 048
  21. ANCEF [Concomitant]
     Dosage: 1 G, UNK
     Route: 042
     Dates: start: 20031111
  22. VECURONIUM BROMIDE [Concomitant]
     Dosage: UNK
     Route: 042
     Dates: start: 20031111
  23. EFFEXOR [Concomitant]
     Route: 048
  24. NITROGLYCERIN [Concomitant]
     Dosage: 0.4 MG, UNK
     Route: 060
  25. VITAMIN C CITRUS [Concomitant]
     Dosage: 1000 MG, UNK
     Route: 048
  26. VITAMIN E [Concomitant]
     Dosage: 800 MG, UNK
     Route: 048
  27. PRIMACOR [Concomitant]
     Dosage: 0.30 UNK
     Route: 042
     Dates: start: 20031111
  28. DOBUTAMINE HYDROCHLORIDE [Concomitant]
     Dosage: UNK
     Route: 042
     Dates: start: 20031111

REACTIONS (14)
  - UNEVALUABLE EVENT [None]
  - INJURY [None]
  - PAIN [None]
  - DEPRESSION [None]
  - RENAL FAILURE [None]
  - RENAL IMPAIRMENT [None]
  - FEAR [None]
  - RENAL FAILURE ACUTE [None]
  - ANHEDONIA [None]
  - DYSPEPSIA [None]
  - RENAL INJURY [None]
  - EMOTIONAL DISTRESS [None]
  - STRESS [None]
  - ANXIETY [None]
